FAERS Safety Report 4571268-6 (Version None)
Quarter: 2005Q1

REPORT INFORMATION
  Report Type: 
  Country: None (occurrence: None)
  Receive Date: 20050202
  Receipt Date: 20050117
  Transmission Date: 20050727
  Serious: Yes (Hospitalization, Other)
  Sender: FDA-Public Use
  Company Number: USA050188539

PATIENT
  Sex: Female

DRUGS (7)
  1. CYMBALTA [Suspect]
     Indication: DEPRESSION
     Dosage: 30 MG/2 DAY
  2. TEGRETOL (CARBAMAZEPINE RIVOPHARM) [Concomitant]
  3. ASACOL [Concomitant]
  4. ATIVAN [Concomitant]
  5. LOPRESSOR [Concomitant]
  6. LEXAPRO [Concomitant]
  7. ASPIRIN [Concomitant]

REACTIONS (9)
  - ABASIA [None]
  - CEREBROVASCULAR ACCIDENT [None]
  - DEPRESSED LEVEL OF CONSCIOUSNESS [None]
  - DYSPHAGIA [None]
  - FALL [None]
  - FEELING ABNORMAL [None]
  - HEAD INJURY [None]
  - MASTICATION DISORDER [None]
  - SOMNOLENCE [None]
